FAERS Safety Report 7387182 (Version 3)
Quarter: 2018Q1

REPORT INFORMATION
  Report Type: Report from Study
  Country: DE (occurrence: DE)
  Receive Date: 20100513
  Receipt Date: 20180125
  Transmission Date: 20180509
  Serious: Yes (Hospitalization)
  Sender: FDA-Public Use
  Company Number: DE-PFIZER INC-2010055369

PATIENT
  Age: 70 Year
  Sex: Male
  Weight: 110 kg

DRUGS (19)
  1. ISOSORBIDE DINITRATE. [Concomitant]
     Active Substance: ISOSORBIDE DINITRATE
     Indication: CARDIOVASCULAR DISORDER
     Dosage: 20 MG, 1X/DAY
     Route: 048
  2. RAMIPRIL/HYDROCHLOROTHIAZIDE [Concomitant]
     Active Substance: HYDROCHLOROTHIAZIDE\RAMIPRIL
     Indication: HYPERTENSION
     Dosage: 3.75 MG/18.75 MG, 1X/DAY
     Route: 048
  3. COLESTYRAMINE/DICLOFENAC [Concomitant]
     Indication: PAIN
     Dosage: UNK
     Route: 048
  4. PROTAPHAN [Concomitant]
     Indication: DIABETES MELLITUS
     Dosage: 32 IU, 2X/DAY
     Route: 058
  5. INSULIN [Concomitant]
     Active Substance: INSULIN NOS
  6. SIMVASTATIN. [Concomitant]
     Active Substance: SIMVASTATIN
     Indication: HYPERCHOLESTEROLAEMIA
     Dosage: 20 MG, 1X/DAY
     Route: 048
  7. MAGNESIUM CARBONATE [Concomitant]
     Active Substance: MAGNESIUM CARBONATE
     Indication: CARDIOVASCULAR DISORDER
     Dosage: 300 MG, 1X/DAY
     Route: 048
  8. ASPIRIN. [Concomitant]
     Active Substance: ASPIRIN
     Indication: CARDIOVASCULAR DISORDER
     Dosage: 100 MG, 1X/DAY
     Route: 048
  9. TRAMAL [Concomitant]
     Active Substance: TRAMADOL
     Indication: PAIN
     Dosage: 100 MG, 1X/DAY
     Route: 048
  10. PARACETAMOL [Concomitant]
     Active Substance: ACETAMINOPHEN
     Dosage: 1000 MG, AS NEEDED
  11. RANITIDINE. [Concomitant]
     Active Substance: RANITIDINE
     Dosage: 50 MG THREE TIMES DAILY
     Route: 042
  12. HYDROCHLOROTHIAZIDE WITH TRIAMTERENE [Concomitant]
     Active Substance: HYDROCHLOROTHIAZIDE\TRIAMTERENE
     Indication: DIURETIC THERAPY
     Dosage: TRIAMTEREN 25 MG /HYDROCHLOROTHIAZID 50 MG 1X/DAY
     Route: 048
     Dates: end: 20100430
  13. AMBROXOL [Concomitant]
     Active Substance: AMBROXOL
     Dosage: 15 MG TWO TIMES DAILY
     Route: 042
  14. DULOXETINE. [Concomitant]
     Active Substance: DULOXETINE
     Indication: PAIN
     Dosage: 30 MG, 1X/DAY
     Route: 048
  15. SIMVASTATIN. [Concomitant]
     Active Substance: SIMVASTATIN
     Dosage: 40 MG ONCE DAILY
  16. SUNITINIB MALATE. [Suspect]
     Active Substance: SUNITINIB MALATE
     Indication: RENAL CELL CARCINOMA
     Dosage: 50 MG, 1X/DAY
     Route: 048
     Dates: start: 20090819, end: 20100407
  17. METOPROLOL. [Concomitant]
     Active Substance: METOPROLOL
     Dosage: 47.5 MG ONCE DAILY
  18. HEPARIN [Concomitant]
     Active Substance: HEPARIN SODIUM
     Dosage: 25000 IE/D
  19. MODAFINIL. [Concomitant]
     Active Substance: MODAFINIL
     Dosage: 10 MG TWO TIMES DAILY

REACTIONS (4)
  - Myocardial infarction [Recovered/Resolved]
  - Renal failure [Recovered/Resolved]
  - Sepsis [Recovered/Resolved]
  - Pneumonia legionella [Recovered/Resolved]

NARRATIVE: CASE EVENT DATE: 20100430
